FAERS Safety Report 11261271 (Version 1)
Quarter: 2015Q3

REPORT INFORMATION
  Report Type: Spontaneous
  Country: IT (occurrence: IT)
  Receive Date: 20150710
  Receipt Date: 20150710
  Transmission Date: 20151125
  Serious: Yes (Other)
  Sender: FDA-Public Use
  Company Number: IT-BAYER-2015-370775

PATIENT
  Age: 57 Year
  Sex: Male

DRUGS (1)
  1. KETOPROFEN (SYSTEMIC FORMULATION) [Suspect]
     Active Substance: KETOPROFEN
     Dosage: UNK

REACTIONS (2)
  - Autoimmune hepatitis [None]
  - Drug-induced liver injury [None]
